FAERS Safety Report 8187999 (Version 3)
Quarter: 2014Q2

REPORT INFORMATION
  Report Type: Spontaneous
  Country: US (occurrence: US)
  Receive Date: 20111018
  Receipt Date: 20140623
  Transmission Date: 20141212
  Serious: No
  Sender: FDA-Public Use
  Company Number: US-ASTRAZENECA-2011SE19339

PATIENT
  Age: 51 Year
  Sex: Female
  Weight: 81.6 kg

DRUGS (9)
  1. SYMBICORT PMDI [Suspect]
     Dosage: 160/4.5 MCG UNKNOWN FREQUENCY
     Route: 055
  2. SEROQUEL [Suspect]
     Indication: BIPOLAR DISORDER
     Dosage: 50 MG AM 450 MG PM
     Route: 048
     Dates: start: 2002
  3. SEROQUEL [Suspect]
     Indication: BIPOLAR DISORDER
     Route: 048
  4. SEROQUEL [Suspect]
     Indication: BIPOLAR DISORDER
     Route: 048
     Dates: start: 2003
  5. KLONIPIN [Concomitant]
     Indication: BIPOLAR DISORDER
     Route: 048
     Dates: start: 2002
  6. TEGRETOL [Concomitant]
     Indication: BIPOLAR DISORDER
     Route: 048
     Dates: start: 2002
  7. PAXIL [Concomitant]
     Indication: BIPOLAR DISORDER
     Route: 048
     Dates: start: 2002
  8. VENTOLIN [Concomitant]
  9. TRAZODONE [Concomitant]

REACTIONS (7)
  - Nocturnal dyspnoea [Unknown]
  - Chest pain [Unknown]
  - Somnolence [Unknown]
  - Cough [Unknown]
  - Insomnia [Unknown]
  - Therapeutic response changed [Unknown]
  - Drug dose omission [Unknown]
